FAERS Safety Report 23564028 (Version 1)
Quarter: 2024Q1

REPORT INFORMATION
  Report Type: Spontaneous
  Country: CA (occurrence: CA)
  Receive Date: 20240226
  Receipt Date: 20240226
  Transmission Date: 20240410
  Serious: Yes (Other)
  Sender: FDA-Public Use
  Company Number: None

PATIENT
  Age: 40 Year
  Sex: Male
  Weight: 120 kg

DRUGS (3)
  1. METHOTREXATE [Suspect]
     Active Substance: METHOTREXATE
     Indication: Psoriatic arthropathy
     Route: 065
  2. FOLIC ACID [Concomitant]
     Active Substance: FOLIC ACID
  3. HUMIRA [Concomitant]
     Active Substance: ADALIMUMAB

REACTIONS (3)
  - Dry eye [Unknown]
  - Ear dryness [Unknown]
  - Psoriatic arthropathy [Unknown]
